FAERS Safety Report 25774120 (Version 1)
Quarter: 2025Q3

REPORT INFORMATION
  Report Type: Spontaneous
  Country: US (occurrence: None)
  Receive Date: 20250906
  Receipt Date: 20250906
  Transmission Date: 20251020
  Serious: Yes (Life-Threatening, Hospitalization, Disabling, Other)
  Sender: FDA-CTU
  Company Number: None

PATIENT
  Age: 32 Year
  Sex: Male
  Weight: 65.77 kg

DRUGS (10)
  1. BIKTARVY [Suspect]
     Active Substance: BICTEGRAVIR SODIUM\EMTRICITABINE\TENOFOVIR ALAFENAMIDE FUMARATE
     Indication: Antiretroviral therapy
     Route: 048
  2. TADALAFIL [Concomitant]
     Active Substance: TADALAFIL
  3. RISPERDAL [Concomitant]
     Active Substance: RISPERIDONE
  4. RISPERIDONE [Concomitant]
     Active Substance: RISPERIDONE
  5. loermermdime [Concomitant]
  6. VITAMIN C [Concomitant]
     Active Substance: ASCORBIC ACID
  7. VITAMIN D [Concomitant]
     Active Substance: VITAMIN D NOS
  8. FIBER THERAPY (CALCIUM POLYCARBOPHIL) [Concomitant]
     Active Substance: CALCIUM POLYCARBOPHIL
  9. VITAMINS [Concomitant]
     Active Substance: VITAMINS
  10. testotrone [Concomitant]

REACTIONS (4)
  - Product formulation issue [None]
  - Hypersensitivity [None]
  - Ill-defined disorder [None]
  - Adverse event [None]

NARRATIVE: CASE EVENT DATE: 20250902
